FAERS Safety Report 25591347 (Version 2)
Quarter: 2025Q3

REPORT INFORMATION
  Report Type: Report from Study
  Country: KR (occurrence: KR)
  Receive Date: 20250722
  Receipt Date: 20250825
  Transmission Date: 20251020
  Serious: Yes (Other)
  Sender: TAKEDA
  Company Number: KR-TAKEDA-2025TUS065030

PATIENT
  Age: 37 Year
  Sex: Male
  Weight: 69 kg

DRUGS (17)
  1. VEDOLIZUMAB [Suspect]
     Active Substance: VEDOLIZUMAB
     Indication: Colitis ulcerative
     Dates: start: 20240603, end: 20241010
  2. VEDOLIZUMAB [Suspect]
     Active Substance: VEDOLIZUMAB
  3. Fexonadine [Concomitant]
     Indication: Injection site swelling
     Dosage: 180 MILLIGRAM, QD
     Dates: start: 20240919
  4. Solondo [Concomitant]
     Dosage: 30 MILLIGRAM, QD
     Dates: start: 20240725, end: 20240731
  5. Solondo [Concomitant]
     Dosage: 25 MILLIGRAM, QD
     Dates: start: 20240801, end: 20240807
  6. Solondo [Concomitant]
     Dosage: 20 MILLIGRAM, QD
     Dates: start: 20240808, end: 20240814
  7. Solondo [Concomitant]
     Dosage: 17.5 MILLIGRAM, QD
     Dates: start: 20240815, end: 20240821
  8. Solondo [Concomitant]
     Dosage: 15 MILLIGRAM, QD
     Dates: start: 20240822, end: 20240828
  9. Solondo [Concomitant]
     Dosage: 12.5 MILLIGRAM, QD
     Dates: start: 20240829, end: 20240904
  10. Solondo [Concomitant]
     Dosage: 10 MILLIGRAM, QD
     Dates: start: 20240905, end: 20240911
  11. Solondo [Concomitant]
     Dosage: 7.5 MILLIGRAM, QD
     Dates: start: 20240912, end: 20240918
  12. Solondo [Concomitant]
     Dosage: 5 MILLIGRAM, QD
     Dates: start: 20240919, end: 20240925
  13. Solondo [Concomitant]
     Dosage: 2.5 MILLIGRAM, QD
     Dates: start: 20240926, end: 20241002
  14. Solondo [Concomitant]
     Dosage: 2 MILLIGRAM, QD
     Dates: start: 20241003, end: 20241007
  15. MESALAMINE [Concomitant]
     Active Substance: MESALAMINE
     Dosage: 2400 MILLIGRAM, QD
     Dates: start: 20240725, end: 20240918
  16. TEGOPRAZAN [Concomitant]
     Active Substance: TEGOPRAZAN
     Indication: Gastrooesophageal reflux disease
     Dosage: 25 MILLIGRAM, QD
     Dates: start: 20240822, end: 20241007
  17. STELARA [Concomitant]
     Active Substance: USTEKINUMAB
     Dates: start: 20241010, end: 20241010

REACTIONS (1)
  - Haematochezia [Recovered/Resolved]

NARRATIVE: CASE EVENT DATE: 20240629
